FAERS Safety Report 14187245 (Version 1)
Quarter: 2017Q4

REPORT INFORMATION
  Report Type: Spontaneous
  Country: US (occurrence: US)
  Receive Date: 20171114
  Receipt Date: 20171114
  Transmission Date: 20180321
  Serious: No
  Sender: FDA-Public Use
  Company Number: US-009507513-1711USA005434

PATIENT

DRUGS (3)
  1. VARIVAX [Suspect]
     Active Substance: VARICELLA-ZOSTER VIRUS STRAIN OKA/MERCK LIVE ANTIGEN
     Indication: PROPHYLAXIS
     Dates: start: 20170911, end: 20170911
  2. VARIVAX [Suspect]
     Active Substance: VARICELLA-ZOSTER VIRUS STRAIN OKA/MERCK LIVE ANTIGEN
     Dates: start: 20171103, end: 20171103
  3. STERILE DILUENT [Suspect]
     Active Substance: WATER

REACTIONS (3)
  - No adverse event [Unknown]
  - Product storage error [Unknown]
  - Product storage error [Unknown]

NARRATIVE: CASE EVENT DATE: 20170911
